FAERS Safety Report 12091078 (Version 3)
Quarter: 2016Q2

REPORT INFORMATION
  Report Type: Spontaneous
  Country: US (occurrence: US)
  Receive Date: 20160218
  Receipt Date: 20160524
  Transmission Date: 20160815
  Serious: Yes (Death)
  Sender: FDA-Public Use
  Company Number: US-PFIZER INC-2016095541

PATIENT
  Age: 77 Year
  Sex: Male

DRUGS (11)
  1. ASPIRIN /00002701/ [Concomitant]
     Active Substance: ASPIRIN
     Dosage: 325 MG, UNK
  2. CLOPIDOGREL [Concomitant]
     Active Substance: CLOPIDOGREL BISULFATE
     Dosage: 75 MG, UNK
  3. POTASSIUM [Concomitant]
     Active Substance: POTASSIUM
     Dosage: 20 MEQ, UNK
  4. CRESTOR [Concomitant]
     Active Substance: ROSUVASTATIN CALCIUM
     Dosage: 20 MG, UNK
  5. CALCIUM 600 PLUS VITAMIN D3 [Concomitant]
     Dosage: UNK
  6. FISH OIL [Concomitant]
     Active Substance: FISH OIL
     Dosage: 1200 MG, UNK
  7. BUMETANIDE. [Concomitant]
     Active Substance: BUMETANIDE
     Dosage: 2 MG, UNK
  8. CENTRUM SILVER /02363801/ [Concomitant]
     Active Substance: MINERALS\VITAMINS
     Dosage: UNK
  9. RAPAMUNE [Suspect]
     Active Substance: SIROLIMUS
     Indication: HEART TRANSPLANT
     Dosage: UNK
  10. OMEPRAZOLE. [Concomitant]
     Active Substance: OMEPRAZOLE
     Dosage: 80 MG, UNK (40 MG (2 CAPS))
  11. METOPROLOL TARTRATE. [Concomitant]
     Active Substance: METOPROLOL TARTRATE
     Dosage: 25 MG, UNK

REACTIONS (3)
  - Product use issue [Unknown]
  - Renal disorder [Unknown]
  - Death [Fatal]

NARRATIVE: CASE EVENT DATE: 20151216
